FAERS Safety Report 17349200 (Version 1)
Quarter: 2020Q1

REPORT INFORMATION
  Report Type: Spontaneous
  Country: US (occurrence: US)
  Receive Date: 20200130
  Receipt Date: 20200130
  Transmission Date: 20200409
  Serious: Yes (Life-Threatening, Hospitalization, Other)
  Sender: FDA-Public Use
  Company Number: US-BAXTER-2020BAX001945

PATIENT
  Age: 74 Year
  Sex: Female

DRUGS (2)
  1. BUPIVACAINE HYDROCHLORIDE IN 8.25% DEXTROSE INJECTION USP [Suspect]
     Active Substance: BUPIVACAINE HYDROCHLORIDE
     Indication: PAIN
     Dosage: 50 ML SOLUTION (10 MG/ML MORPHINE [500 MG] AND 35 MG/ML BUPIVACAINE [1750 MG])
     Route: 037
  2. MORPHINE [Suspect]
     Active Substance: MORPHINE
     Indication: PAIN
     Dosage: 50 ML SOLUTION (10 MG/ML MORPHINE [500 MG] AND 35 MG/ML BUPIVACAINE [1750 MG])
     Route: 037

REACTIONS (8)
  - Neuropathy peripheral [Recovering/Resolving]
  - Toxicity to various agents [Unknown]
  - Hypotension [Recovered/Resolved]
  - Device malfunction [Unknown]
  - Neurotoxicity [Unknown]
  - Peripheral sensorimotor neuropathy [Recovering/Resolving]
  - Neurogenic shock [Unknown]
  - Status epilepticus [Recovered/Resolved]
